FAERS Safety Report 25825379 (Version 1)
Quarter: 2025Q3

REPORT INFORMATION
  Report Type: Report from Study
  Country: US (occurrence: US)
  Receive Date: 20250919
  Receipt Date: 20250919
  Transmission Date: 20251021
  Serious: Yes (Other)
  Sender: AMGEN
  Company Number: US-AMGEN-USASL2025182744

PATIENT
  Age: 59 Year
  Sex: Female

DRUGS (3)
  1. PROLIA [Suspect]
     Active Substance: DENOSUMAB
     Indication: Product used for unknown indication
     Route: 065
  2. PROLIA [Suspect]
     Active Substance: DENOSUMAB
  3. EVENITY [Suspect]
     Active Substance: ROMOSOZUMAB-AQQG
     Indication: Product used for unknown indication
     Route: 065

REACTIONS (6)
  - Facial paralysis [Recovered/Resolved]
  - Dysgeusia [Unknown]
  - Chills [Unknown]
  - Nasopharyngitis [Unknown]
  - Bone disorder [Unknown]
  - Pain [Unknown]

NARRATIVE: CASE EVENT DATE: 20250911
